FAERS Safety Report 8850749 (Version 2)
Quarter: 2013Q1

REPORT INFORMATION
  Report Type: Spontaneous
  Country: FR (occurrence: FR)
  Receive Date: 20121019
  Receipt Date: 20130111
  Transmission Date: 20140127
  Serious: Yes (Death, Hospitalization)
  Sender: FDA-Public Use
  Company Number: FR-GENZYME-CAMP-1002474

PATIENT
  Age: 68 Year
  Sex: Male
  Weight: 70 kg

DRUGS (5)
  1. CAMPATH [Suspect]
     Indication: CHRONIC LYMPHOCYTIC LEUKAEMIA RECURRENT
     Dosage: 30 MG, 3X/W
     Route: 058
     Dates: start: 20120709, end: 20120907
  2. BACTRIM [Concomitant]
     Indication: PRODUCT USED FOR UNKNOWN INDICATION
     Dosage: 1 PILLX3XW
     Route: 065
     Dates: start: 201207, end: 20120910
  3. ZELITREX [Concomitant]
     Indication: PRODUCT USED FOR UNKNOWN INDICATION
     Dosage: 2 PILLS, QD
     Route: 065
     Dates: start: 201207, end: 20120910
  4. SPECIAFOLDINE [Concomitant]
     Indication: PRODUCT USED FOR UNKNOWN INDICATION
     Dosage: 2 PILLS, QD
     Route: 065
     Dates: start: 201207, end: 20120910
  5. DEXAMETHASONE [Concomitant]
     Indication: PRODUCT USED FOR UNKNOWN INDICATION
     Dosage: 40 MG, QD
     Route: 065
     Dates: start: 20120827, end: 20120830

REACTIONS (4)
  - Histiocytosis haematophagic [Fatal]
  - Neoplasm malignant [Fatal]
  - Aplasia [Unknown]
  - Epstein-Barr virus infection [Fatal]
